FAERS Safety Report 5844099-4 (Version None)
Quarter: 2008Q3

REPORT INFORMATION
  Report Type: 
  Country: None (occurrence: None)
  Receive Date: 20080813
  Receipt Date: 20080801
  Transmission Date: 20090109
  Serious: Yes (Other)
  Sender: FDA-Public Use
  Company Number: US-PFIZER INC-2008064215

PATIENT

DRUGS (1)
  1. NEURONTIN [Suspect]

REACTIONS (1)
  - SPINAL FUSION SURGERY [None]
